FAERS Safety Report 7760092-9 (Version None)
Quarter: 2011Q3

REPORT INFORMATION
  Report Type: 
  Country: None (occurrence: None)
  Receive Date: 20110919
  Receipt Date: 20110914
  Transmission Date: 20111222
  Serious: Yes (Other)
  Sender: FDA-Public Use
  Company Number: CHPA2011US12500

PATIENT
  Age: 72 Year
  Sex: Female

DRUGS (3)
  1. BENEFIBER W/ WHEAT DEXTRIN [Suspect]
     Indication: BOWEL MOVEMENT IRREGULARITY
     Dosage: 3 HEAPING TEASPOONS IN THE MORNING OR NIGHT
     Route: 048
  2. DRUG THERAPY NOS [Concomitant]
  3. RANITIDINE HYDROCHLORIDE [Concomitant]

REACTIONS (11)
  - DIVERTICULITIS [None]
  - STRESS [None]
  - OVERDOSE [None]
  - POLLAKIURIA [None]
  - GASTRITIS EROSIVE [None]
  - CONSTIPATION [None]
  - THERAPEUTIC RESPONSE UNEXPECTED [None]
  - OFF LABEL USE [None]
  - GASTRITIS [None]
  - MYALGIA [None]
  - GASTROINTESTINAL DISORDER [None]
